FAERS Safety Report 8917512 (Version 1)
Quarter: 2012Q4

REPORT INFORMATION
  Report Type: 
  Country: IT (occurrence: IT)
  Receive Date: 20121120
  Receipt Date: 20121120
  Transmission Date: 20130627
  Serious: Yes (Life-Threatening)
  Sender: FDA-Public Use
  Company Number: IT-TEVA-369408ISR

PATIENT
  Age: 61 Year
  Sex: Female

DRUGS (2)
  1. CEFTRIAXONE [Suspect]
     Indication: BRONCHITIS
     Dosage: 1 Gram Daily;
     Route: 030
     Dates: start: 20121022, end: 20121022
  2. TACHIDOL, EFFERVESCENT GRANULES [Concomitant]
     Indication: ARTHRITIS
     Dosage: paracetamol 500mg/codeine 30mg, effervescent granules
     Dates: start: 20121019, end: 20121021

REACTIONS (4)
  - Urticaria [Recovered/Resolved]
  - Loss of consciousness [Recovered/Resolved]
  - Product quality issue [None]
  - Product substitution issue [None]
